FAERS Safety Report 7000472-2 (Version None)
Quarter: 2010Q3

REPORT INFORMATION
  Report Type: 
  Country: None (occurrence: None)
  Receive Date: 20100920
  Receipt Date: 20100909
  Transmission Date: 20110219
  Serious: Yes (Other)
  Sender: FDA-Public Use
  Company Number: JP-JNJFOC-20100801835

PATIENT
  Sex: Male

DRUGS (18)
  1. REMICADE [Suspect]
     Indication: RHEUMATOID ARTHRITIS
     Dosage: A TOTAL OF 3 INFUSIONS
     Route: 042
  2. REMICADE [Suspect]
     Route: 042
  3. REMICADE [Suspect]
     Route: 042
  4. METALCAPTASE [Concomitant]
     Indication: SCLERODERMA
     Route: 048
  5. RHEUMATREX [Concomitant]
     Indication: RHEUMATOID ARTHRITIS
     Route: 048
  6. PREDONINE [Concomitant]
     Indication: RHEUMATOID ARTHRITIS
     Route: 042
  7. PREDONINE [Concomitant]
     Route: 042
  8. PREDONINE [Concomitant]
     Indication: PROPHYLAXIS
     Route: 042
  9. PREDONINE [Concomitant]
     Route: 042
  10. KEBERA S [Concomitant]
     Indication: PROPHYLAXIS
     Route: 042
  11. FLOMOX [Concomitant]
     Dosage: 3 TAB
     Route: 048
  12. BACTRAMIN [Concomitant]
     Dosage: 1 TAB
     Route: 048
  13. TAKEPRON [Concomitant]
     Indication: REFLUX OESOPHAGITIS
     Route: 048
  14. LOXONIN [Concomitant]
     Indication: RHEUMATOID ARTHRITIS
     Route: 048
  15. PROMAC (POLAPREZINC) [Concomitant]
     Indication: GASTRITIS
     Route: 048
  16. ISOTONIC SODIUM CHLORIDE [Concomitant]
  17. DEXTROSE [Concomitant]
     Indication: HYPOGLYCAEMIA
     Route: 042
  18. OXYGEN [Concomitant]

REACTIONS (7)
  - ANAPHYLACTIC REACTION [None]
  - BLOOD GLUCOSE DECREASED [None]
  - DYSGEUSIA [None]
  - INFUSION RELATED REACTION [None]
  - PYREXIA [None]
  - RASH [None]
  - RED BLOOD CELL COUNT DECREASED [None]
